FAERS Safety Report 7365063-2 (Version None)
Quarter: 2011Q1

REPORT INFORMATION
  Report Type: 
  Country: None (occurrence: None)
  Receive Date: 20110321
  Receipt Date: 20110307
  Transmission Date: 20110831
  Serious: Yes (Other)
  Sender: FDA-Public Use
  Company Number: US-WATSON-2011-03428

PATIENT
  Age: 17 Month
  Sex: Male

DRUGS (3)
  1. CYCLOPHOSPHAMIDE [Suspect]
     Indication: HISTIOCYTOSIS HAEMATOPHAGIC
     Dosage: UNK
  2. ETOPOSIDE [Suspect]
     Indication: HISTIOCYTOSIS HAEMATOPHAGIC
     Dosage: UNK
  3. DEXAMETHASONE ACETATE [Suspect]
     Indication: HISTIOCYTOSIS HAEMATOPHAGIC
     Dosage: UNK

REACTIONS (1)
  - ACUTE PROMYELOCYTIC LEUKAEMIA [None]
